FAERS Safety Report 9411850 (Version 2)
Quarter: 2013Q3

REPORT INFORMATION
  Report Type: Spontaneous
  Country: US (occurrence: US)
  Receive Date: 20130722
  Receipt Date: 20130911
  Transmission Date: 20140515
  Serious: No
  Sender: FDA-Public Use
  Company Number: US-PFIZER INC-2013210853

PATIENT
  Age: 49 Year
  Sex: Female
  Weight: 56.69 kg

DRUGS (1)
  1. ADVIL COLD + SINUS [Suspect]
     Indication: SINUS HEADACHE
     Dosage: 200/30 MG, TWO TIMES A DAY
     Route: 048
     Dates: end: 20130716

REACTIONS (1)
  - Drug ineffective [Unknown]
